FAERS Safety Report 10434099 (Version 1)
Quarter: 2014Q3

REPORT INFORMATION
  Report Type: Spontaneous
  Country: US (occurrence: US)
  Receive Date: 20140905
  Receipt Date: 20140905
  Transmission Date: 20150326
  Serious: Yes (Hospitalization)
  Sender: FDA-Public Use
  Company Number: US-PERRIGO-14US008472

PATIENT
  Age: 17 Year
  Sex: Male

DRUGS (3)
  1. ACETAMINOPHEN 650MG ER 544 [Suspect]
     Active Substance: ACETAMINOPHEN
     Indication: INTENTIONAL OVERDOSE
     Dosage: UNK, SINGLE
     Route: 048
  2. HYDROGEN PEROXIDE. [Suspect]
     Active Substance: HYDROGEN PEROXIDE
     Indication: INTENTIONAL PRODUCT MISUSE
     Dosage: UNK, SINGLE
     Route: 048
  3. ASPIRIN EC [Suspect]
     Active Substance: ASPIRIN
     Indication: INTENTIONAL OVERDOSE
     Dosage: UNK, SINGLE
     Route: 048

REACTIONS (6)
  - Bezoar [Recovered/Resolved]
  - Nausea [Recovered/Resolved]
  - Vomiting [None]
  - Overdose [Recovered/Resolved with Sequelae]
  - Abdominal tenderness [Recovered/Resolved]
  - Toxicity to various agents [Recovered/Resolved]
